FAERS Safety Report 8353934 (Version 6)
Quarter: 2012Q4

REPORT INFORMATION
  Report Type: 
  Country: US (occurrence: US)
  Receive Date: 20120125
  Receipt Date: 20121203
  Transmission Date: 20130627
  Serious: Yes (Other)
  Sender: FDA-Public Use
  Company Number: US-ACTELION-A-US2011-49638

PATIENT
  Age: 84 Year
  Sex: Male

DRUGS (7)
  1. TRACLEER [Suspect]
     Indication: PULMONARY ARTERIAL HYPERTENSION
     Dosage: UNK
     Route: 048
  2. TRACLEER [Suspect]
     Dosage: UNK
     Route: 048
  3. CIALIS [Concomitant]
  4. PROCRIT [Concomitant]
  5. ADCIRCA [Concomitant]
  6. OXYCODONE / ACETAMINOPHEN [Concomitant]
  7. SPIRONOLACTONE [Concomitant]

REACTIONS (21)
  - Neoplasm malignant [Unknown]
  - Skin cancer [Unknown]
  - Surgery [Unknown]
  - Musculoskeletal stiffness [Unknown]
  - Muscle spasms [Unknown]
  - Back pain [Unknown]
  - Eye pain [Unknown]
  - Lacrimation increased [Unknown]
  - Arthralgia [Unknown]
  - Dyspnoea [Unknown]
  - Nasal congestion [Unknown]
  - Weight increased [Unknown]
  - Headache [Unknown]
  - Malaise [Unknown]
  - Oedema peripheral [Unknown]
  - Fluid retention [Recovered/Resolved]
  - Oedema [Unknown]
  - Rhinorrhoea [Unknown]
  - Joint swelling [None]
  - Oedema peripheral [None]
  - Headache [None]
